FAERS Safety Report 4597557-7 (Version None)
Quarter: 2005Q1

REPORT INFORMATION
  Report Type: 
  Country: None (occurrence: None)
  Receive Date: 20050303
  Receipt Date: 20050221
  Transmission Date: 20050727
  Serious: Yes (Hospitalization)
  Sender: FDA-Public Use
  Company Number: JP-JNJFOC-20050203806

PATIENT
  Sex: Female
  Weight: 51 kg

DRUGS (19)
  1. CRAVIT [Suspect]
     Indication: UPPER RESPIRATORY TRACT INFLAMMATION
     Route: 049
     Dates: start: 20050210, end: 20050212
  2. TALION [Suspect]
     Route: 049
     Dates: start: 20050210, end: 20050212
  3. CALONAL [Suspect]
     Route: 049
     Dates: start: 20050210, end: 20050212
  4. LONGES [Concomitant]
     Route: 049
     Dates: start: 20050101
  5. TORSEMIDE [Concomitant]
     Route: 049
     Dates: start: 20031201
  6. BUFFERIN [Concomitant]
     Route: 049
     Dates: start: 20031201
  7. BUFFERIN [Concomitant]
     Route: 049
     Dates: start: 20031201
  8. BUFFERIN [Concomitant]
     Route: 049
     Dates: start: 20031201
  9. ALOSENN [Concomitant]
     Route: 049
     Dates: start: 20031201
  10. ALOSENN [Concomitant]
     Route: 049
     Dates: start: 20031201
  11. ALOSENN [Concomitant]
     Route: 049
     Dates: start: 20031201
  12. ALOSENN [Concomitant]
     Route: 049
     Dates: start: 20031201
  13. ALOSENN [Concomitant]
     Route: 049
     Dates: start: 20031201
  14. DILTIAZEM HCL [Concomitant]
     Route: 049
     Dates: start: 20031201
  15. THEO-DUR [Concomitant]
     Route: 049
     Dates: start: 20031201
  16. ALOSITOL [Concomitant]
     Route: 049
     Dates: start: 20031201
  17. WARFARIN SODIUM [Concomitant]
     Route: 049
     Dates: start: 20031201
  18. LASIX [Concomitant]
     Route: 049
     Dates: start: 20031201
  19. SERMION [Concomitant]
     Route: 049
     Dates: start: 20031201

REACTIONS (1)
  - LOSS OF CONSCIOUSNESS [None]
